FAERS Safety Report 18510123 (Version 4)
Quarter: 2022Q1

REPORT INFORMATION
  Report Type: Report from Study
  Country: JP (occurrence: JP)
  Receive Date: 20201117
  Receipt Date: 20220225
  Transmission Date: 20220423
  Serious: Yes (Hospitalization)
  Sender: FDA-Public Use
  Company Number: NVSJ2020JP012032

PATIENT
  Age: 7 Year
  Sex: Female
  Weight: 23 kg

DRUGS (45)
  1. ILARIS [Suspect]
     Active Substance: CANAKINUMAB
     Indication: Still^s disease
     Dosage: 96 MG
     Route: 058
     Dates: start: 20190422
  2. ILARIS [Suspect]
     Active Substance: CANAKINUMAB
     Dosage: 103 MG
     Route: 058
     Dates: start: 20191125
  3. ILARIS [Suspect]
     Active Substance: CANAKINUMAB
     Dosage: 103 MG
     Route: 058
     Dates: start: 20191223
  4. ILARIS [Suspect]
     Active Substance: CANAKINUMAB
     Dosage: 96 MG
     Route: 058
     Dates: start: 20200120
  5. ILARIS [Suspect]
     Active Substance: CANAKINUMAB
     Dosage: 96 MG
     Route: 058
     Dates: start: 20200217
  6. ILARIS [Suspect]
     Active Substance: CANAKINUMAB
     Dosage: 96 MG
     Route: 058
     Dates: start: 20200318
  7. ILARIS [Suspect]
     Active Substance: CANAKINUMAB
     Dosage: 96 MG
     Route: 058
     Dates: start: 20200414
  8. ILARIS [Suspect]
     Active Substance: CANAKINUMAB
     Dosage: 90 MG
     Route: 058
     Dates: start: 20200513
  9. ILARIS [Suspect]
     Active Substance: CANAKINUMAB
     Dosage: 90 MG
     Route: 058
     Dates: start: 20200608
  10. ILARIS [Suspect]
     Active Substance: CANAKINUMAB
     Dosage: 90 MG
     Route: 058
     Dates: start: 20200706
  11. ILARIS [Suspect]
     Active Substance: CANAKINUMAB
     Dosage: 90 MG
     Route: 058
     Dates: start: 20200803
  12. ILARIS [Suspect]
     Active Substance: CANAKINUMAB
     Dosage: 96 MG
     Route: 058
     Dates: start: 20200902
  13. ILARIS [Suspect]
     Active Substance: CANAKINUMAB
     Dosage: 90 MG
     Route: 058
     Dates: start: 20200930
  14. ILARIS [Suspect]
     Active Substance: CANAKINUMAB
     Dosage: 96 MG
     Route: 058
     Dates: start: 20201026
  15. ILARIS [Suspect]
     Active Substance: CANAKINUMAB
     Dosage: 94 MG
     Route: 058
     Dates: start: 20201125
  16. ILARIS [Suspect]
     Active Substance: CANAKINUMAB
     Dosage: 92 MG
     Route: 058
     Dates: start: 20201221
  17. ILARIS [Suspect]
     Active Substance: CANAKINUMAB
     Dosage: 92 MG
     Route: 058
     Dates: start: 20210118
  18. ILARIS [Suspect]
     Active Substance: CANAKINUMAB
     Dosage: 104 MG
     Route: 058
     Dates: start: 20210215
  19. ILARIS [Suspect]
     Active Substance: CANAKINUMAB
     Dosage: 105 MG
     Route: 058
     Dates: start: 20210315
  20. ILARIS [Suspect]
     Active Substance: CANAKINUMAB
     Dosage: 106 MG
     Route: 058
     Dates: start: 20210412
  21. ILARIS [Suspect]
     Active Substance: CANAKINUMAB
     Dosage: 106 MG
     Route: 058
     Dates: start: 20210510
  22. ILARIS [Suspect]
     Active Substance: CANAKINUMAB
     Dosage: 104 MG
     Route: 058
     Dates: start: 20210607
  23. ILARIS [Suspect]
     Active Substance: CANAKINUMAB
     Dosage: 102 MG
     Route: 058
     Dates: start: 20210705
  24. ILARIS [Suspect]
     Active Substance: CANAKINUMAB
     Dosage: 100 MG
     Route: 058
     Dates: start: 20210802
  25. ILARIS [Suspect]
     Active Substance: CANAKINUMAB
     Dosage: 100 MG
     Route: 058
     Dates: start: 20210830
  26. ILARIS [Suspect]
     Active Substance: CANAKINUMAB
     Dosage: 100 MG
     Route: 058
     Dates: start: 20210927
  27. ILARIS [Suspect]
     Active Substance: CANAKINUMAB
     Dosage: 100 MG
     Route: 058
     Dates: start: 20211025
  28. ILARIS [Suspect]
     Active Substance: CANAKINUMAB
     Dosage: 100 MG
     Route: 058
     Dates: start: 20211122
  29. PREDNISOLONE [Concomitant]
     Active Substance: PREDNISOLONE
     Indication: Still^s disease
     Dosage: 9 MG
     Route: 048
     Dates: start: 20191125, end: 20191222
  30. PREDNISOLONE [Concomitant]
     Active Substance: PREDNISOLONE
     Dosage: 8 MG
     Route: 048
     Dates: start: 20191223, end: 20200126
  31. PREDNISOLONE [Concomitant]
     Active Substance: PREDNISOLONE
     Dosage: 7 MG
     Route: 048
     Dates: start: 20200127, end: 20200322
  32. PREDNISOLONE [Concomitant]
     Active Substance: PREDNISOLONE
     Dosage: 6 MG
     Route: 048
     Dates: start: 20200323, end: 20200426
  33. PREDNISOLONE [Concomitant]
     Active Substance: PREDNISOLONE
     Dosage: 5 MG
     Route: 048
     Dates: start: 20200427, end: 20200524
  34. PREDNISOLONE [Concomitant]
     Active Substance: PREDNISOLONE
     Dosage: 4 MG, QD
     Route: 048
     Dates: start: 20200525, end: 20201108
  35. PREDNISOLONE [Concomitant]
     Active Substance: PREDNISOLONE
     Dosage: 8 MG, QD
     Route: 048
     Dates: start: 20201109, end: 20201130
  36. PREDNISOLONE [Concomitant]
     Active Substance: PREDNISOLONE
     Dosage: 20 MG
     Route: 048
     Dates: start: 20201201, end: 20201220
  37. PREDNISOLONE [Concomitant]
     Active Substance: PREDNISOLONE
     Dosage: 17.5 MG
     Route: 048
     Dates: start: 20201221, end: 20210118
  38. PREDNISOLONE [Concomitant]
     Active Substance: PREDNISOLONE
     Dosage: 13.5 MG
     Route: 048
     Dates: start: 20210119, end: 20210214
  39. PREDNISOLONE [Concomitant]
     Active Substance: PREDNISOLONE
     Dosage: 11 MG
     Route: 048
     Dates: start: 20210215, end: 20210314
  40. PREDNISOLONE [Concomitant]
     Active Substance: PREDNISOLONE
     Dosage: 8 MG
     Route: 048
     Dates: start: 20210315, end: 20210328
  41. PREDNISOLONE [Concomitant]
     Active Substance: PREDNISOLONE
     Dosage: 7 MG
     Route: 048
     Dates: start: 20210329, end: 20210411
  42. PREDNISOLONE [Concomitant]
     Active Substance: PREDNISOLONE
     Dosage: 6 MG
     Route: 048
     Dates: start: 20210412, end: 20210509
  43. PREDNISOLONE [Concomitant]
     Active Substance: PREDNISOLONE
     Dosage: 5 MG
     Route: 048
     Dates: start: 20210510, end: 20210523
  44. PREDNISOLONE [Concomitant]
     Active Substance: PREDNISOLONE
     Dosage: 4.5 MG
     Route: 048
     Dates: start: 20210524, end: 20210627
  45. PREDNISOLONE [Concomitant]
     Active Substance: PREDNISOLONE
     Dosage: 4 MG
     Route: 048
     Dates: start: 20210628

REACTIONS (5)
  - Haemophagocytic lymphohistiocytosis [Recovered/Resolved]
  - Chills [Unknown]
  - Pyrexia [Recovered/Resolved]
  - Still^s disease [Recovered/Resolved]
  - Disease progression [Recovered/Resolved]

NARRATIVE: CASE EVENT DATE: 20201019
